FAERS Safety Report 15340354 (Version 1)
Quarter: 2018Q3

REPORT INFORMATION
  Report Type: Spontaneous
  Country: AR (occurrence: AR)
  Receive Date: 20180831
  Receipt Date: 20180831
  Transmission Date: 20181010
  Serious: Yes (Death)
  Sender: FDA-Public Use
  Company Number: AR-PFIZER INC-2017473445

PATIENT
  Age: 82 Year
  Sex: Male

DRUGS (1)
  1. SUTENT [Suspect]
     Active Substance: SUNITINIB MALATE
     Indication: METASTATIC RENAL CELL CARCINOMA
     Dosage: UNK, DAILY
     Dates: start: 20150401

REACTIONS (8)
  - Scoliosis [Unknown]
  - Fall [Recovered/Resolved]
  - Neoplasm progression [Unknown]
  - Death [Fatal]
  - Asthenia [Recovered/Resolved]
  - Bone disorder [Unknown]
  - Bone pain [Unknown]
  - Arthralgia [Unknown]

NARRATIVE: CASE EVENT DATE: 2017
